FAERS Safety Report 9200617 (Version 1)
Quarter: 2013Q1

REPORT INFORMATION
  Report Type: Report from Study
  Country: US (occurrence: US)
  Receive Date: 20130329
  Receipt Date: 20130329
  Transmission Date: 20140127
  Serious: Yes (Hospitalization)
  Sender: FDA-Public Use
  Company Number: US-009507513-2012SP016138

PATIENT
  Age: 15 Year
  Sex: Male
  Weight: 72.1 kg

DRUGS (7)
  1. ASENAPINE MALEATE-SCHIZOPHRENIA [Suspect]
     Indication: SCHIZOPHRENIA
     Dosage: 2.5 MG, BID
     Route: 060
     Dates: start: 20120308, end: 20120317
  2. ASENAPINE MALEATE-SCHIZOPHRENIA [Suspect]
     Dosage: 2.5 MG, BID
     Route: 060
     Dates: start: 20120308, end: 20120317
  3. IBUPROFEN [Concomitant]
     Indication: HEADACHE
     Dosage: 400 MG, PRN
     Route: 048
     Dates: start: 20120310
  4. RISPERIDONE [Concomitant]
     Indication: SCHIZOPHRENIA
     Dosage: 3 MG, BID
     Route: 048
     Dates: start: 201008, end: 20120307
  5. ARIPIPRAZOLE [Concomitant]
     Indication: SCHIZOPHRENIA
     Dosage: 2.5 MG, QAM
     Route: 048
     Dates: start: 201010, end: 20120307
  6. CELEXA [Concomitant]
     Indication: PRODUCT USED FOR UNKNOWN INDICATION
     Dosage: INDICATION: DECREASE MOOD AND MOTIVATION
     Route: 048
     Dates: start: 201008, end: 20120307
  7. COGENTIN [Concomitant]
     Dosage: INDICATION :PREVENT SIDE EFFECTS
     Route: 048
     Dates: start: 201010

REACTIONS (1)
  - Hallucination, auditory [Recovering/Resolving]
